FAERS Safety Report 10668156 (Version 1)
Quarter: 2014Q4

REPORT INFORMATION
  Report Type: Spontaneous
  Country: US (occurrence: US)
  Receive Date: 20141222
  Receipt Date: 20141222
  Transmission Date: 20150529
  Serious: No
  Sender: FDA-Public Use
  Company Number: US-GLAXOSMITHKLINE-A1052252A

PATIENT

DRUGS (12)
  1. N-ACETYLCYSTEINE [Concomitant]
     Active Substance: ACETYLCYSTEINE
  2. ESCITALOPRAM [Concomitant]
     Active Substance: ESCITALOPRAM OXALATE
  3. PROBIOTIC [Concomitant]
     Active Substance: PROBIOTICS NOS
  4. CLARITIN [Concomitant]
     Active Substance: LORATADINE
  5. ALFUZOSIN [Concomitant]
     Active Substance: ALFUZOSIN
  6. NEXIUM [Concomitant]
     Active Substance: ESOMEPRAZOLE MAGNESIUM
  7. TRICOR [Concomitant]
     Active Substance: FENOFIBRATE
  8. NASONEX [Concomitant]
     Active Substance: MOMETASONE FUROATE
  9. MULTIVITAMIN [Concomitant]
     Active Substance: VITAMINS
  10. AVODART [Suspect]
     Active Substance: DUTASTERIDE
     Indication: BENIGN PROSTATIC HYPERPLASIA
     Route: 048
     Dates: start: 201210
  11. GARLIC. [Concomitant]
     Active Substance: GARLIC
  12. DIAVAN [Concomitant]
     Active Substance: ASCORBIC ACID/ CHROMIUM/ SELENIUM/VANADYL SULFATE

REACTIONS (1)
  - Platelet count increased [Not Recovered/Not Resolved]

NARRATIVE: CASE EVENT DATE: 201212
